FAERS Safety Report 4271317-9 (Version None)
Quarter: 2004Q1

REPORT INFORMATION
  Report Type: 
  Country: None (occurrence: None)
  Receive Date: 20040113
  Receipt Date: 20040102
  Transmission Date: 20041129
  Serious: Yes (Other)
  Sender: FDA-Public Use
  Company Number: 2003124111

PATIENT
  Age: 77 Year
  Sex: Male

DRUGS (3)
  1. LIPITOR [Suspect]
     Indication: BLOOD CHOLESTEROL INCREASED
     Dosage: 20 MG (DAILY), ORAL
     Route: 048
     Dates: start: 20020101, end: 20031101
  2. GLIMEPIRIDE [Concomitant]
  3. AMLODIPINE BESYLATE [Concomitant]

REACTIONS (2)
  - CONVULSION [None]
  - DIARRHOEA [None]
